FAERS Safety Report 16951577 (Version 2)
Quarter: 2019Q4

REPORT INFORMATION
  Report Type: Report from Study
  Country: CO (occurrence: CO)
  Receive Date: 20191023
  Receipt Date: 20191114
  Transmission Date: 20200122
  Serious: Yes (Hospitalization, Other)
  Sender: FDA-Public Use
  Company Number: CO-ASTELLAS-2019US016251

PATIENT
  Age: 64 Year
  Sex: Male

DRUGS (13)
  1. MYCOPHENOLATE [Concomitant]
     Active Substance: MYCOPHENOLIC ACID
     Indication: RENAL TRANSPLANT
     Dosage: 2 CAPSULES OF 360 MG IN THE MORNING AND 1 CAPSULE OF 360 MG AT NIGHT
     Route: 048
     Dates: end: 20190816
  2. DALTEPARIN [Concomitant]
     Active Substance: DALTEPARIN
     Indication: PRODUCT USED FOR UNKNOWN INDICATION
     Dosage: UNK UNK, UNKNOWN FREQ.
     Route: 042
     Dates: start: 20190918, end: 20190929
  3. CLONIDINE. [Concomitant]
     Active Substance: CLONIDINE
     Indication: BLOOD PRESSURE ABNORMAL
     Dosage: 50 MG, 1 EVERY 12 HOURS
     Route: 048
  4. TACROLIMUS. [Suspect]
     Active Substance: TACROLIMUS
     Dosage: 3 MG, ONCE DAILY (3 CAPSULES OF 1 MG)
     Route: 048
     Dates: start: 20190817
  5. TRIMETOPRIM [Concomitant]
     Active Substance: TRIMETHOPRIM
     Indication: INFECTION PROPHYLAXIS
     Route: 048
     Dates: end: 201907
  6. ACETAMINOPHEN. [Concomitant]
     Active Substance: ACETAMINOPHEN
     Indication: PRODUCT USED FOR UNKNOWN INDICATION
     Route: 048
  7. TACROLIMUS. [Suspect]
     Active Substance: TACROLIMUS
     Dosage: 4 MG, ONCE DAILY (4 CAPSULES OF 1 MG)
     Route: 048
  8. MYCOPHENOLATE [Concomitant]
     Active Substance: MYCOPHENOLIC ACID
     Route: 048
     Dates: start: 20190817
  9. MYCOPHENOLATE [Concomitant]
     Active Substance: MYCOPHENOLIC ACID
     Route: 048
  10. LEVOTHYROXINE. [Concomitant]
     Active Substance: LEVOTHYROXINE
     Indication: THYROID DISORDER
     Dosage: 150 MG, 2 IN THE MORNING ON AN EMPT STOMACH
     Route: 048
  11. TACROLIMUS. [Suspect]
     Active Substance: TACROLIMUS
     Indication: RENAL TRANSPLANT
     Dosage: 4 MG, ONCE DAILY (1 CAPSULE OF 1 MG AND 1 CAPSULE OF 3 MG)
     Route: 048
     Dates: start: 20190226
  12. PREDNISOLONE. [Concomitant]
     Active Substance: PREDNISOLONE
     Indication: PRODUCT USED FOR UNKNOWN INDICATION
     Route: 048
  13. TACROLIMUS. [Suspect]
     Active Substance: TACROLIMUS
     Dosage: 4 MG, ONCE DAILY (4 CAPSULES OF 1 MG)
     Route: 048
     Dates: end: 20190816

REACTIONS (8)
  - Bacteraemia [Recovered/Resolved]
  - Prostatitis [Recovering/Resolving]
  - Urinary tract infection bacterial [Recovering/Resolving]
  - Pyrexia [Recovered/Resolved]
  - Urine output decreased [Recovered/Resolved]
  - Bacteraemia [Recovering/Resolving]
  - Blood creatinine increased [Recovering/Resolving]
  - Heart rate increased [Recovering/Resolving]

NARRATIVE: CASE EVENT DATE: 20190404
